FAERS Safety Report 8653850 (Version 3)
Quarter: 2012Q4

REPORT INFORMATION
  Report Type: 
  Country: FR (occurrence: FR)
  Receive Date: 20120709
  Receipt Date: 20121010
  Transmission Date: 20130627
  Serious: Yes (Death)
  Sender: FDA-Public Use
  Company Number: PHHY2012FR058308

PATIENT
  Age: 83 Year
  Sex: Male
  Weight: 85 kg

DRUGS (6)
  1. OSLIF BREEZHALER [Suspect]
     Indication: CHRONIC OBSTRUCTIVE PULMONARY DISEASE
     Dosage: 150 ug, QD
     Route: 055
     Dates: start: 20120402, end: 20120419
  2. AMIODARONE [Concomitant]
     Indication: CARDIAC FAILURE
     Dosage: 1 DF, 1 dose-form daily
     Dates: start: 2007
  3. DIURETICS [Concomitant]
     Indication: CARDIAC FAILURE
  4. PREVISCAN [Concomitant]
     Indication: ATRIAL FIBRILLATION
     Dosage: 0.5 DF daily
     Dates: start: 20070730
  5. PLAVIX [Concomitant]
     Indication: CORONARY ARTERY DISEASE
     Dosage: 1 DF, daily
     Dates: start: 2007
  6. FUROSEMIDE [Concomitant]
     Indication: CARDIAC FAILURE
     Dosage: 1 DF, daily
     Dates: start: 2007

REACTIONS (2)
  - Cardiac failure [Fatal]
  - Generalised oedema [Fatal]
